FAERS Safety Report 17752014 (Version 5)
Quarter: 2020Q2

REPORT INFORMATION
  Report Type: Spontaneous
  Country: CN (occurrence: CN)
  Receive Date: 20200506
  Receipt Date: 20200528
  Transmission Date: 20200714
  Serious: Yes (Death, Hospitalization, Other)
  Sender: FDA-Public Use
  Company Number: CN-ACTELION-A-CH2020-204743

PATIENT
  Age: 31 Year
  Sex: Female
  Weight: 53 kg

DRUGS (22)
  1. UPTRAVI [Suspect]
     Active Substance: SELEXIPAG
     Dosage: 0.2 MG, BID
     Route: 048
     Dates: start: 20200331
  2. UPTRAVI [Suspect]
     Active Substance: SELEXIPAG
     Dosage: UNK
     Route: 048
     Dates: end: 20200429
  3. REMODULIN [Concomitant]
     Active Substance: TREPROSTINIL
     Indication: PULMONARY ARTERIAL HYPERTENSION
     Dosage: 1.25 NG/KG, PER MIN
  4. METHYLPREDNISOLONE SODIUM SUCCINATE. [Concomitant]
     Active Substance: METHYLPREDNISOLONE SODIUM SUCCINATE
     Dosage: 1 G, QD
     Route: 042
     Dates: start: 20200504, end: 20200505
  5. OPSUMIT [Suspect]
     Active Substance: MACITENTAN
     Indication: PULMONARY ARTERIAL HYPERTENSION
     Dosage: 10 MG, QD
     Route: 048
  6. LEVOSIMENDAN [Concomitant]
     Active Substance: LEVOSIMENDAN
  7. UPTRAVI [Suspect]
     Active Substance: SELEXIPAG
     Indication: PULMONARY ARTERIAL HYPERTENSION
     Dosage: 0.6 MG, BID
     Route: 048
  8. RIOCIGUAT. [Concomitant]
     Active Substance: RIOCIGUAT
     Indication: PULMONARY ARTERIAL HYPERTENSION
     Dosage: UNK
     Route: 048
     Dates: start: 201810
  9. WARFARIN [Concomitant]
     Active Substance: WARFARIN
     Dosage: 3 MG, QD
     Route: 048
  10. TORASEMIDE [Concomitant]
     Active Substance: TORSEMIDE
     Dosage: 40 MG, QOD
  11. METHYLPREDNISOLONE SODIUM SUCCINATE. [Concomitant]
     Active Substance: METHYLPREDNISOLONE SODIUM SUCCINATE
     Dosage: 40 MG
     Route: 042
     Dates: start: 20200429
  12. AMBRISENTAN [Concomitant]
     Active Substance: AMBRISENTAN
     Indication: PULMONARY ARTERIAL HYPERTENSION
     Dosage: UNK
     Dates: start: 201810
  13. NORADRENALINE [NOREPINEPHRINE] [Concomitant]
     Active Substance: NOREPINEPHRINE
     Dosage: 0.4 MG, PER MIN
     Route: 042
     Dates: start: 20200503
  14. RIOCIGUAT. [Concomitant]
     Active Substance: RIOCIGUAT
     Dosage: 2.5 MG, TID
     Route: 048
  15. TACROLIMUS. [Concomitant]
     Active Substance: TACROLIMUS
     Indication: SYSTEMIC LUPUS ERYTHEMATOSUS
     Dosage: 1 MG, BID
     Route: 048
  16. SPIRONOLACTONE. [Concomitant]
     Active Substance: SPIRONOLACTONE
     Dosage: 20 MG, QD
     Route: 048
  17. FUROSEMIDE. [Concomitant]
     Active Substance: FUROSEMIDE
     Dosage: 40 MG, QOD
     Route: 048
  18. REMODULIN [Concomitant]
     Active Substance: TREPROSTINIL
     Dosage: 8.75 NG/KG, PER MIN
  19. PREDNISONE. [Concomitant]
     Active Substance: PREDNISONE
     Indication: SYSTEMIC LUPUS ERYTHEMATOSUS
     Dosage: 7.5 MG, QD
     Route: 048
  20. NORADRENALINE [NOREPINEPHRINE] [Concomitant]
     Active Substance: NOREPINEPHRINE
     Dosage: 0.1 MG, PER MIN
     Route: 042
     Dates: start: 20200503
  21. AMBRISENTAN [Concomitant]
     Active Substance: AMBRISENTAN
     Dosage: 2.5 MG, TID
     Route: 048
  22. METHYLPREDNISOLONE SODIUM SUCCINATE. [Concomitant]
     Active Substance: METHYLPREDNISOLONE SODIUM SUCCINATE
     Dosage: 80 MG
     Route: 042
     Dates: start: 20200506

REACTIONS (39)
  - Heart rate decreased [Fatal]
  - Rash vesicular [Unknown]
  - Abdominal cavity drainage [Unknown]
  - Epilepsy [Unknown]
  - Ascites [Not Recovered/Not Resolved]
  - Cardiomegaly [Fatal]
  - Left ventricular dysfunction [Fatal]
  - Blood pressure decreased [Fatal]
  - Pulmonary arterial pressure increased [Fatal]
  - Plasmapheresis [Unknown]
  - Peripheral ischaemia [Unknown]
  - Dry gangrene [Unknown]
  - Haemoglobin decreased [Unknown]
  - International normalised ratio increased [Unknown]
  - Activated partial thromboplastin time prolonged [Unknown]
  - Brain natriuretic peptide increased [Fatal]
  - Peripheral swelling [Unknown]
  - Peripheral embolism [Unknown]
  - Headache [Recovering/Resolving]
  - Lupus encephalitis [Unknown]
  - Blood creatinine increased [Unknown]
  - N-terminal prohormone brain natriuretic peptide increased [Fatal]
  - Chest discomfort [Fatal]
  - Cardiac valve thickening [Fatal]
  - Decreased activity [Fatal]
  - Mitral valve incompetence [Fatal]
  - Loss of consciousness [Recovered/Resolved]
  - Incontinence [Unknown]
  - Platelet count decreased [Unknown]
  - Prothrombin level decreased [Unknown]
  - Prothrombin time prolonged [Unknown]
  - Pulmonary hypertension [Fatal]
  - Dyspnoea [Fatal]
  - Tricuspid valve incompetence [Fatal]
  - Cardiac dysfunction [Fatal]
  - Aspartate aminotransferase increased [Unknown]
  - Flatulence [Not Recovered/Not Resolved]
  - Seizure [Recovered/Resolved]
  - Cyanosis [Recovered/Resolved]

NARRATIVE: CASE EVENT DATE: 2020
